FAERS Safety Report 18219118 (Version 1)
Quarter: 2020Q3

REPORT INFORMATION
  Report Type: Spontaneous
  Country: NO (occurrence: NO)
  Receive Date: 20200901
  Receipt Date: 20200901
  Transmission Date: 20201103
  Serious: Yes (Hospitalization, Other)
  Sender: FDA-Public Use
  Company Number: NO-GLAXOSMITHKLINE-NO2020173282

PATIENT
  Age: 82 Year
  Sex: Female

DRUGS (2)
  1. VALTREX [Suspect]
     Active Substance: VALACYCLOVIR HYDROCHLORIDE
     Indication: HERPES ZOSTER
     Dosage: 1 G, TID, DOSE NOT ADJUSTED FOR RENAL FAILURE
     Route: 048
     Dates: start: 20200727, end: 20200801
  2. LYRICA [Concomitant]
     Active Substance: PREGABALIN
     Indication: PRODUCT USED FOR UNKNOWN INDICATION
     Dosage: UNK
     Route: 048
     Dates: start: 20200731

REACTIONS (6)
  - Toxicity to various agents [Unknown]
  - Diplopia [Unknown]
  - Delirium [Unknown]
  - Dysarthria [Unknown]
  - Somnolence [Unknown]
  - Hemiparesis [Unknown]

NARRATIVE: CASE EVENT DATE: 20200731
